FAERS Safety Report 24263555 (Version 4)
Quarter: 2025Q4

REPORT INFORMATION
  Report Type: Spontaneous
  Country: US (occurrence: US)
  Receive Date: 20240829
  Receipt Date: 20251217
  Transmission Date: 20260117
  Serious: Yes (Other)
  Sender: VERTEX
  Company Number: US-VERTEX PHARMACEUTICALS-2024-013589

PATIENT
  Sex: Male

DRUGS (2)
  1. ELEXACAFTOR\IVACAFTOR\TEZACAFTOR [Suspect]
     Active Substance: ELEXACAFTOR\IVACAFTOR\TEZACAFTOR
     Indication: Cystic fibrosis
     Dosage: UNKNOWN DOSAGE REGIMEN
     Route: 061
  2. ELEXACAFTOR\IVACAFTOR\TEZACAFTOR [Suspect]
     Active Substance: ELEXACAFTOR\IVACAFTOR\TEZACAFTOR
     Dosage: 2 ORANGE TABS ON MON (AM), 2 ORANGE ON THURS (PM)
     Route: 061

REACTIONS (22)
  - Circulatory collapse [Unknown]
  - Illness anxiety disorder [Unknown]
  - Anxiety [Unknown]
  - Fungal infection [Unknown]
  - Gastrointestinal candidiasis [Unknown]
  - Chest pain [Unknown]
  - Chest discomfort [Unknown]
  - Skin lesion [Unknown]
  - Fatigue [Unknown]
  - Confusional state [Unknown]
  - Tinnitus [Unknown]
  - Testicular pain [Unknown]
  - Bronchial secretion retention [Unknown]
  - Malabsorption [Unknown]
  - Oropharyngeal pain [Unknown]
  - Cystic fibrosis related diabetes [Unknown]
  - Abdominal pain lower [Unknown]
  - Rhinorrhoea [Unknown]
  - Vision blurred [Not Recovered/Not Resolved]
  - Ear swelling [Not Recovered/Not Resolved]
  - Brain fog [Not Recovered/Not Resolved]
  - Dizziness [Not Recovered/Not Resolved]
